FAERS Safety Report 6487411-8 (Version None)
Quarter: 2009Q4

REPORT INFORMATION
  Report Type: 
  Country: None (occurrence: None)
  Receive Date: 20091209
  Receipt Date: 20091209
  Transmission Date: 20100525
  Serious: Yes (Other)
  Sender: FDA-Public Use
  Company Number: None

PATIENT
  Age: 48 Year
  Sex: Male
  Weight: 84.1 kg

DRUGS (2)
  1. CIPRO [Suspect]
     Indication: EPIDIDYMITIS
     Dosage: TWICE A DAY ORAL 047
     Route: 048
     Dates: start: 20090103, end: 20090110
  2. CIPRO [Suspect]
     Indication: GROIN PAIN
     Dosage: TWICE A DAY ORAL 047
     Route: 048
     Dates: start: 20090103, end: 20090110

REACTIONS (9)
  - ARTHRALGIA [None]
  - GAIT DISTURBANCE [None]
  - JOINT STIFFNESS [None]
  - MUSCLE SPASMS [None]
  - MUSCULOSKELETAL STIFFNESS [None]
  - SWELLING [None]
  - TENDON DISORDER [None]
  - TENDON PAIN [None]
  - UNEVALUABLE EVENT [None]
